FAERS Safety Report 8802967 (Version 2)
Quarter: 2012Q4

REPORT INFORMATION
  Report Type: 
  Country: JP (occurrence: JP)
  Receive Date: 20120922
  Receipt Date: 20121102
  Transmission Date: 20130627
  Serious: Yes (Other)
  Sender: FDA-Public Use
  Company Number: JP-009507513-1209JPN005223

PATIENT
  Age: 52 Year
  Sex: Female

DRUGS (3)
  1. REMERON [Suspect]
     Indication: DEPRESSION
     Dosage: 15 mg, qd
     Route: 048
     Dates: start: 20110120, end: 20120616
  2. SILECE [Concomitant]
     Indication: INSOMNIA
     Dosage: 2 mg, qd
     Route: 048
     Dates: start: 20110203
  3. LORAMET [Concomitant]
     Indication: INSOMNIA
     Dosage: 2 mg, qd
     Route: 048
     Dates: start: 20110224

REACTIONS (1)
  - Somnambulism [Recovered/Resolved]
